FAERS Safety Report 10431067 (Version 12)
Quarter: 2015Q4

REPORT INFORMATION
  Report Type: Report from Study
  Country: US (occurrence: US)
  Receive Date: 20140904
  Receipt Date: 20151121
  Transmission Date: 20160304
  Serious: Yes (Hospitalization, Other)
  Sender: FDA-Public Use
  Company Number: US-BAYER-2014-076024

PATIENT
  Age: 64 Year
  Sex: Female
  Weight: 55.78 kg

DRUGS (8)
  1. ADEMPAS [Suspect]
     Active Substance: RIOCIGUAT
     Indication: PULMONARY HYPERTENSION
     Dosage: 2 MG, TID
     Route: 048
     Dates: start: 20140110
  2. ADEMPAS [Suspect]
     Active Substance: RIOCIGUAT
     Indication: COR PULMONALE CHRONIC
     Dosage: 1.5 MG, TID
     Route: 048
  3. ADEMPAS [Suspect]
     Active Substance: RIOCIGUAT
     Indication: COR PULMONALE CHRONIC
     Dosage: 1.5 MG, TID
     Route: 048
  4. ADEMPAS [Suspect]
     Active Substance: RIOCIGUAT
     Indication: COR PULMONALE CHRONIC
     Dosage: 1.5 MG, TID
     Route: 048
  5. ADEMPAS [Suspect]
     Active Substance: RIOCIGUAT
     Indication: COR PULMONALE CHRONIC
     Dosage: 1.5 MG, TID
     Route: 048
  6. ADEMPAS [Suspect]
     Active Substance: RIOCIGUAT
     Indication: COR PULMONALE CHRONIC
     Dosage: 1.5 MG, TID
  7. ADEMPAS [Suspect]
     Active Substance: RIOCIGUAT
     Indication: COR PULMONALE CHRONIC
     Dosage: UNK
     Dates: start: 20140109
  8. ENOXAPARIN [Concomitant]
     Active Substance: ENOXAPARIN

REACTIONS (28)
  - Migraine [Not Recovered/Not Resolved]
  - Pyrexia [Unknown]
  - Ascites [None]
  - Insomnia [Unknown]
  - Migraine [Unknown]
  - Dyspnoea [Unknown]
  - Microembolism [None]
  - Urinary retention [Unknown]
  - Hypotension [None]
  - Exercise tolerance decreased [Unknown]
  - Dyspnoea [Unknown]
  - Vomiting [Unknown]
  - Platelet count increased [Unknown]
  - Malaise [Unknown]
  - Syncope [None]
  - Pneumonia [Unknown]
  - Headache [Unknown]
  - Migraine [None]
  - Asthma [Unknown]
  - Sinusitis [Unknown]
  - Respiratory tract infection [Unknown]
  - Dyspnoea [None]
  - Migraine [None]
  - Fatigue [Unknown]
  - Constipation [Unknown]
  - Arthralgia [Unknown]
  - Chest pain [Unknown]
  - Nausea [Unknown]

NARRATIVE: CASE EVENT DATE: 2014
